FAERS Safety Report 20245661 (Version 1)
Quarter: 2021Q4

REPORT INFORMATION
  Report Type: Spontaneous
  Country: DE (occurrence: DE)
  Receive Date: 20211229
  Receipt Date: 20211229
  Transmission Date: 20220303
  Serious: Yes (Other)
  Sender: FDA-Public Use
  Company Number: DE-NOVARTISPH-NVSC2021DE291830

PATIENT
  Age: 80 Year
  Sex: Female

DRUGS (1)
  1. BROLUCIZUMAB [Suspect]
     Active Substance: BROLUCIZUMAB
     Indication: Choroidal neovascularisation
     Dosage: UNK
     Route: 065

REACTIONS (8)
  - Iridocyclitis [Unknown]
  - Iris adhesions [Recovered/Resolved]
  - Lenticular pigmentation [Unknown]
  - Retinal deposits [Unknown]
  - Retinal drusen [Unknown]
  - Visual impairment [Unknown]
  - Anterior chamber cell [Unknown]
  - Product use in unapproved indication [Unknown]

NARRATIVE: CASE EVENT DATE: 20210428
